FAERS Safety Report 11099596 (Version 1)
Quarter: 2015Q2

REPORT INFORMATION
  Report Type: Spontaneous
  Country: CA (occurrence: None)
  Receive Date: 20150506
  Receipt Date: 20150506
  Transmission Date: 20150821
  Serious: Yes (Other)
  Sender: FDA-Public Use
  Company Number: 2844311

PATIENT
  Age: 51 Year
  Sex: Male

DRUGS (1)
  1. AZITHROMYCIN [Suspect]
     Active Substance: AZITHROMYCIN ANHYDROUS
     Indication: ILL-DEFINED DISORDER
     Dosage: NOT REPORTED, UNKNOWN, UNKNOWN

REACTIONS (1)
  - Hypersensitivity vasculitis [None]
